FAERS Safety Report 6346737-9 (Version None)
Quarter: 2009Q3

REPORT INFORMATION
  Report Type: 
  Country: None (occurrence: None)
  Receive Date: 20090904
  Receipt Date: 20090901
  Transmission Date: 20100115
  Serious: Yes (Hospitalization)
  Sender: FDA-Public Use
  Company Number: FRP09000969

PATIENT
  Age: 67 Year
  Sex: Male

DRUGS (1)
  1. DIDRONEL [Suspect]
     Dosage: ORAL
     Route: 048

REACTIONS (1)
  - SMALL INTESTINAL PERFORATION [None]
